FAERS Safety Report 24466401 (Version 1)
Quarter: 2024Q4

REPORT INFORMATION
  Report Type: Report from Study
  Country: US (occurrence: US)
  Receive Date: 20241018
  Receipt Date: 20241018
  Transmission Date: 20250115
  Serious: No
  Sender: ROCHE
  Company Number: US-ROCHE-3534780

PATIENT

DRUGS (5)
  1. XOLAIR [Suspect]
     Active Substance: OMALIZUMAB
     Indication: Chronic spontaneous urticaria
     Route: 065
  2. XOLAIR [Suspect]
     Active Substance: OMALIZUMAB
     Indication: Mast cell activation syndrome
  3. ALLEGRA [Concomitant]
     Active Substance: FEXOFENADINE HYDROCHLORIDE
  4. ZYRTEC [Concomitant]
     Active Substance: CETIRIZINE HYDROCHLORIDE
  5. PEPCID [Concomitant]
     Active Substance: FAMOTIDINE

REACTIONS (18)
  - Gastrooesophageal reflux disease [Recovering/Resolving]
  - Diarrhoea [Unknown]
  - Brain fog [Unknown]
  - Arthralgia [Unknown]
  - Rhinorrhoea [Unknown]
  - Eye pruritus [Unknown]
  - Mouth ulceration [Recovering/Resolving]
  - Swollen tongue [Unknown]
  - Dental caries [Unknown]
  - Tonsillitis [Unknown]
  - Amnesia [Unknown]
  - Urticaria [Unknown]
  - Lacrimation increased [Unknown]
  - Wheezing [Unknown]
  - Hypoaesthesia [Unknown]
  - Chronic spontaneous urticaria [Unknown]
  - Dysphagia [Unknown]
  - Flushing [Unknown]
